FAERS Safety Report 9929513 (Version 1)
Quarter: 2014Q1

REPORT INFORMATION
  Report Type: Spontaneous
  Country: GR (occurrence: GR)
  Receive Date: 20140227
  Receipt Date: 20140227
  Transmission Date: 20141002
  Serious: Yes (Other)
  Sender: FDA-Public Use
  Company Number: GR-GLAXOSMITHKLINE-B0972464A

PATIENT
  Age: 78 Year
  Sex: Female

DRUGS (3)
  1. ARIXTRA [Suspect]
  2. PLAVIX [Suspect]
     Route: 065
  3. ANALGESICS [Concomitant]

REACTIONS (2)
  - Subdural haematoma [Unknown]
  - Muscular weakness [Unknown]
